FAERS Safety Report 19962900 (Version 1)
Quarter: 2021Q4

REPORT INFORMATION
  Report Type: Spontaneous
  Country: US (occurrence: US)
  Receive Date: 20211017
  Receipt Date: 20211017
  Transmission Date: 20220303
  Serious: Yes (Other)
  Sender: FDA-Public Use
  Company Number: None

PATIENT
  Age: 57 Year
  Sex: Male
  Weight: 137.25 kg

DRUGS (14)
  1. TINACTIN [Suspect]
     Active Substance: TOLNAFTATE
     Indication: Tinea pedis
     Dosage: ?          QUANTITY:1 SPRAY(S);
     Route: 061
  2. HYDRODIURIL [Concomitant]
     Active Substance: HYDROCHLOROTHIAZIDE
  3. BRIMONIDINE [Concomitant]
     Active Substance: BRIMONIDINE TARTRATE
  4. LATANOPROST [Concomitant]
     Active Substance: LATANOPROST
  5. CIALIS [Concomitant]
     Active Substance: TADALAFIL
  6. VITAMINS [Concomitant]
     Active Substance: VITAMINS
  7. ASIAN GINSENG [Concomitant]
     Active Substance: ASIAN GINSENG
  8. FISH OIL [Concomitant]
     Active Substance: FISH OIL
  9. IRON [Concomitant]
     Active Substance: IRON
  10. ARGININE [Concomitant]
     Active Substance: ARGININE
  11. DIETARY SUPPLEMENT [Concomitant]
     Active Substance: DIETARY SUPPLEMENT
  12. MACA [Concomitant]
  13. ZINC [Concomitant]
     Active Substance: ZINC
  14. PROBIOTICS NOS [Concomitant]
     Active Substance: PROBIOTICS NOS

REACTIONS (5)
  - Urticaria [None]
  - Pruritus [None]
  - Skin ulcer [None]
  - Scab [None]
  - Recalled product administered [None]

NARRATIVE: CASE EVENT DATE: 20210915
